FAERS Safety Report 8244110-X (Version None)
Quarter: 2012Q1

REPORT INFORMATION
  Report Type: 
  Country: None (occurrence: None)
  Receive Date: 20120329
  Receipt Date: 20120322
  Transmission Date: 20120608
  Serious: Yes (Hospitalization, Other)
  Sender: FDA-Public Use
  Company Number: US-ABBOTT-12P-163-0917638-00

PATIENT
  Age: 17 Year
  Sex: Female

DRUGS (2)
  1. HUMIRA [Suspect]
     Indication: CROHN'S DISEASE
     Dates: start: 20100915
  2. HUMIRA [Suspect]
     Dates: start: 20120201

REACTIONS (5)
  - PYREXIA [None]
  - INTESTINAL OBSTRUCTION [None]
  - ILEUS [None]
  - ABDOMINAL PAIN [None]
  - CONSTIPATION [None]
